APPROVED DRUG PRODUCT: LEVETIRACETAM
Active Ingredient: LEVETIRACETAM
Strength: 500MG
Dosage Form/Route: TABLET, EXTENDED RELEASE;ORAL
Application: A202524 | Product #001
Applicant: ROUSES POINT PHARMACEUTICALS LLC
Approved: Aug 27, 2012 | RLD: No | RS: No | Type: DISCN